FAERS Safety Report 24168091 (Version 1)
Quarter: 2024Q3

REPORT INFORMATION
  Report Type: Spontaneous
  Country: US (occurrence: US)
  Receive Date: 20240802
  Receipt Date: 20240802
  Transmission Date: 20241017
  Serious: No
  Sender: SANOFI AVENTIS
  Company Number: US-SA-2024SA196205

PATIENT
  Age: 53 Year
  Sex: Female
  Weight: 86.168 kg

DRUGS (4)
  1. DUPIXENT [Suspect]
     Active Substance: DUPILUMAB
     Indication: Asthma
     Dosage: 300 MG, QOW
     Route: 058
     Dates: start: 20240606
  2. DUPIXENT [Suspect]
     Active Substance: DUPILUMAB
     Indication: Nasal polyps
  3. DELSYM [Concomitant]
     Active Substance: DEXTROMETHORPHAN
     Indication: Asthma
  4. DELSYM [Concomitant]
     Active Substance: DEXTROMETHORPHAN
     Indication: Nasal polyps

REACTIONS (6)
  - Cough [Not Recovered/Not Resolved]
  - Sinus congestion [Unknown]
  - Migraine [Unknown]
  - Anosmia [Unknown]
  - Ageusia [Unknown]
  - Sputum discoloured [Unknown]

NARRATIVE: CASE EVENT DATE: 20240101
